FAERS Safety Report 19139198 (Version 1)
Quarter: 2021Q2

REPORT INFORMATION
  Report Type: Spontaneous
  Country: US (occurrence: US)
  Receive Date: 20210414
  Receipt Date: 20210414
  Transmission Date: 20210717
  Serious: No
  Sender: FDA-Public Use
  Company Number: None

PATIENT
  Age: 26 Year
  Sex: Female
  Weight: 81 kg

DRUGS (6)
  1. FLONASE [Concomitant]
     Active Substance: FLUTICASONE PROPIONATE
  2. EMGALITY [Suspect]
     Active Substance: GALCANEZUMAB-GNLM
     Indication: MIGRAINE PROPHYLAXIS
     Dosage: ?          OTHER FREQUENCY:MONTHLY;?
     Route: 058
     Dates: start: 20210116, end: 20210317
  3. SPIRONOLACTONE. [Concomitant]
     Active Substance: SPIRONOLACTONE
  4. COENZYME Q10 [Concomitant]
     Active Substance: DIETARY SUPPLEMENT\UBIDECARENONE
  5. VITAMIN D [Concomitant]
     Active Substance: VITAMIN D NOS
  6. NEXPLANON [Concomitant]
     Active Substance: ETONOGESTREL

REACTIONS (10)
  - Amenorrhoea [None]
  - Sleep disorder [None]
  - Nausea [None]
  - Abdominal distension [None]
  - Menstruation irregular [None]
  - Diarrhoea [None]
  - Heavy menstrual bleeding [None]
  - Haemorrhage [None]
  - Hypophagia [None]
  - Flatulence [None]
